FAERS Safety Report 21149652 (Version 10)
Quarter: 2023Q1

REPORT INFORMATION
  Report Type: Report from Study
  Country: CN (occurrence: CN)
  Receive Date: 20220729
  Receipt Date: 20230124
  Transmission Date: 20230417
  Serious: Yes (Hospitalization, Other)
  Sender: FDA-Public Use
  Company Number: CN-JNJFOC-20220530566

PATIENT
  Age: 71 Year
  Sex: Male
  Weight: 77 kg

DRUGS (37)
  1. AMIVANTAMAB [Suspect]
     Active Substance: AMIVANTAMAB
     Indication: Non-small cell lung cancer metastatic
     Route: 042
     Dates: start: 20220318, end: 20220527
  2. AMLODIPINE BESYLATE [Concomitant]
     Active Substance: AMLODIPINE BESYLATE
     Indication: Hypertension
     Route: 048
     Dates: start: 20180101
  3. ESOMEPRAZOLE MAGNESIUM [Concomitant]
     Active Substance: ESOMEPRAZOLE MAGNESIUM
     Indication: Regurgitation
     Route: 048
     Dates: start: 20220401, end: 20220422
  4. HYDROTALCITE [Concomitant]
     Active Substance: HYDROTALCITE
     Indication: Regurgitation
     Route: 048
     Dates: start: 20220401, end: 20220422
  5. LORATADINE [Concomitant]
     Active Substance: LORATADINE
     Indication: Rash
     Route: 048
     Dates: start: 20220408, end: 20220415
  6. LORATADINE [Concomitant]
     Active Substance: LORATADINE
     Route: 048
     Dates: start: 20220527, end: 20220602
  7. MINOCYCLINE HYDROCHLORIDE [Concomitant]
     Active Substance: MINOCYCLINE HYDROCHLORIDE
     Indication: Rash
     Route: 048
     Dates: start: 20220415, end: 20220526
  8. MINOCYCLINE HYDROCHLORIDE [Concomitant]
     Active Substance: MINOCYCLINE HYDROCHLORIDE
     Indication: Paronychia
     Route: 048
     Dates: start: 20220610, end: 20220729
  9. CHLORHEXIDINE;HYDROCORTISONE [Concomitant]
     Indication: Rash
     Route: 061
     Dates: start: 20220415, end: 20220428
  10. CHLORHEXIDINE;HYDROCORTISONE [Concomitant]
     Route: 061
     Dates: start: 20220513, end: 20220729
  11. CHLORHEXIDINE;HYDROCORTISONE [Concomitant]
     Route: 061
     Dates: start: 20220825
  12. BACILLUS MESENTERICUS;CLOSTRIDIUM BUTYRICUM;ENTEROCOCCUS FAECALIS [Concomitant]
     Indication: Antidiarrhoeal supportive care
     Route: 048
     Dates: start: 20220429, end: 20220524
  13. BACILLUS MESENTERICUS;CLOSTRIDIUM BUTYRICUM;ENTEROCOCCUS FAECALIS [Concomitant]
     Indication: Diarrhoea
     Route: 048
     Dates: start: 20220526
  14. BACILLUS MESENTERICUS;CLOSTRIDIUM BUTYRICUM;ENTEROCOCCUS FAECALIS [Concomitant]
     Route: 048
     Dates: start: 20220325, end: 20220525
  15. BACILLUS MESENTERICUS;CLOSTRIDIUM BUTYRICUM;ENTEROCOCCUS FAECALIS [Concomitant]
     Route: 048
     Dates: start: 20220704, end: 20220705
  16. DENOSUMAB [Concomitant]
     Active Substance: DENOSUMAB
     Indication: Metastases to bone
     Dosage: FREQUENCY: ONCE
     Route: 058
     Dates: start: 20220825, end: 20220825
  17. DENOSUMAB [Concomitant]
     Active Substance: DENOSUMAB
     Indication: Metastases to bone
     Dosage: FREQUENCY: ONCE
     Route: 058
     Dates: start: 20220930, end: 20220930
  18. DENOSUMAB [Concomitant]
     Active Substance: DENOSUMAB
     Dosage: FREQUENCY: ONCE
     Route: 058
     Dates: start: 20221028, end: 20221028
  19. UREA [Concomitant]
     Active Substance: UREA
     Indication: Rash
     Route: 061
     Dates: start: 20220430, end: 20220729
  20. UREA [Concomitant]
     Active Substance: UREA
     Indication: Paronychia
  21. LANSOPRAZOLE [Concomitant]
     Active Substance: LANSOPRAZOLE
     Indication: Regurgitation
     Route: 048
     Dates: start: 20220513, end: 20220729
  22. COMPOUND CAMPHOR [CAMPHOR;CHLORHEXIDINE GLUCONATE;DIPHENHYDRAMINE;ENOX [Concomitant]
     Indication: Rash
     Route: 061
     Dates: start: 20220513, end: 20220729
  23. AMOXICILLIN [Concomitant]
     Active Substance: AMOXICILLIN
     Indication: Paronychia
     Route: 048
     Dates: start: 20220711, end: 20220804
  24. AMPICILLIN SODIUM [Concomitant]
     Active Substance: AMPICILLIN SODIUM
     Indication: Pulmonary mass
     Route: 042
     Dates: start: 20220708, end: 20220711
  25. KANG FU XIN [Concomitant]
     Indication: Mucosal inflammation
     Route: 061
     Dates: start: 20220708
  26. KANG FU XIN [Concomitant]
     Indication: Nasal dryness
     Route: 061
     Dates: start: 20220415, end: 20220729
  27. KANG FU XIN [Concomitant]
     Route: 061
     Dates: start: 20220802, end: 20220817
  28. MUPIROCIN [Concomitant]
     Active Substance: MUPIROCIN
     Indication: Paronychia
     Route: 061
     Dates: start: 20220708, end: 20220817
  29. MUPIROCIN [Concomitant]
     Active Substance: MUPIROCIN
     Indication: Mucosal inflammation
     Route: 061
     Dates: start: 20220711, end: 20220729
  30. FU FANG DING XIANG KAI WEI [Concomitant]
     Indication: Regurgitation
     Route: 061
     Dates: start: 20220616
  31. OMEPRAZOLE SODIUM [Concomitant]
     Active Substance: OMEPRAZOLE SODIUM
     Indication: Regurgitation
     Route: 042
     Dates: start: 20220708, end: 20220711
  32. OMEPRAZOLE SODIUM [Concomitant]
     Active Substance: OMEPRAZOLE SODIUM
     Indication: Prophylaxis
     Route: 042
     Dates: start: 20220729, end: 20220804
  33. POLYMYXIN B [Concomitant]
     Active Substance: POLYMYXIN B
     Indication: Rash
     Route: 061
     Dates: start: 20220430, end: 20221124
  34. POLYMYXIN B [Concomitant]
     Active Substance: POLYMYXIN B
     Indication: Paronychia
     Route: 061
     Dates: start: 20220708, end: 20220729
  35. POLYMYXIN B [Concomitant]
     Active Substance: POLYMYXIN B
     Indication: Mucosal inflammation
     Route: 061
     Dates: start: 20220921
  36. POLYMYXIN B [Concomitant]
     Active Substance: POLYMYXIN B
     Route: 061
     Dates: start: 20220711, end: 20220729
  37. BICYCLOL [Concomitant]
     Active Substance: BICYCLOL
     Indication: Prophylaxis
     Route: 048
     Dates: start: 20220715, end: 20220803

REACTIONS (4)
  - Hypoalbuminaemia [Recovered/Resolved]
  - Hypocalcaemia [Not Recovered/Not Resolved]
  - Hypocalcaemia [Recovered/Resolved]
  - Mucosal inflammation [Recovered/Resolved]

NARRATIVE: CASE EVENT DATE: 20220428
